FAERS Safety Report 4830369-5 (Version None)
Quarter: 2005Q4

REPORT INFORMATION
  Report Type: 
  Country: None (occurrence: None)
  Receive Date: 20051117
  Receipt Date: 20051110
  Transmission Date: 20060501
  Serious: Yes (Death, Hospitalization)
  Sender: FDA-Public Use
  Company Number: US-AVENTIS-200519137US

PATIENT
  Age: 49 Year
  Sex: Female

DRUGS (3)
  1. LANTUS [Suspect]
     Indication: DIABETES MELLITUS INSULIN-DEPENDENT
     Dosage: DOSE: UNK
     Dates: start: 20050601
  2. NPH INSULIN [Concomitant]
     Dosage: DOSE: UNK
  3. REGULAR INSULIN [Concomitant]
     Dosage: DOSE: SLIDING SCALE PRN

REACTIONS (2)
  - DEATH [None]
  - DIABETES MELLITUS INADEQUATE CONTROL [None]
